FAERS Safety Report 6839920-7 (Version None)
Quarter: 2010Q3

REPORT INFORMATION
  Report Type: 
  Country: None (occurrence: None)
  Receive Date: 20100709
  Receipt Date: 20100624
  Transmission Date: 20110219
  Serious: No
  Sender: FDA-Public Use
  Company Number: SPI201000171

PATIENT
  Sex: Female

DRUGS (2)
  1. AMITIZA [Suspect]
     Indication: CONSTIPATION
     Dosage: 24 MCG, ORAL; 8 MCG
     Route: 048
     Dates: start: 20100101, end: 20100101
  2. AMITIZA [Suspect]
     Indication: CONSTIPATION
     Dosage: 24 MCG, ORAL; 8 MCG
     Route: 048
     Dates: start: 20100101

REACTIONS (1)
  - DYSPNOEA [None]
